FAERS Safety Report 13873548 (Version 8)
Quarter: 2024Q1

REPORT INFORMATION
  Report Type: Report from Study
  Country: NL (occurrence: NL)
  Receive Date: 20170816
  Receipt Date: 20240329
  Transmission Date: 20240409
  Serious: Yes (Death, Life-Threatening, Hospitalization, Other)
  Sender: FDA-Public Use
  Company Number: NL-AUROBINDO-AUR-APL-2017-39027

PATIENT
  Age: 73 Year
  Sex: Male

DRUGS (15)
  1. FLUCLOXACILLIN [Interacting]
     Active Substance: FLUCLOXACILLIN
     Indication: Antibiotic therapy
     Dosage: 6 GRAM, ONCE A DAY
     Route: 042
  2. ACETAMINOPHEN [Interacting]
     Active Substance: ACETAMINOPHEN
     Indication: Pain
     Dosage: 1 GRAM, 3 TIMES A DAY
     Route: 042
  3. ACETAMINOPHEN [Interacting]
     Active Substance: ACETAMINOPHEN
     Dosage: 1 GRAM, 3 TIMES A DAY
     Route: 054
  4. CYKLOKAPRON [Concomitant]
     Active Substance: TRANEXAMIC ACID
     Indication: Product used for unknown indication
     Dosage: 1000 MILLIGRAM, 3 TIMES A DAY
     Route: 065
  5. TOLBUTAMIDE [Concomitant]
     Active Substance: TOLBUTAMIDE
     Indication: Product used for unknown indication
     Dosage: 500 MILLIGRAM, TWO TIMES A DAY
     Route: 065
  6. TOLBUTAMIDE [Concomitant]
     Active Substance: TOLBUTAMIDE
     Dosage: 500 MILLIGRAM, TWO TIMES A DAY
     Route: 065
  7. HALDOL [Concomitant]
     Active Substance: HALOPERIDOL
     Indication: Product used for unknown indication
     Dosage: UNK UNK, TWO TIMES A DAY
     Route: 065
  8. ALFACALCIDOL [Concomitant]
     Active Substance: ALFACALCIDOL
     Indication: Product used for unknown indication
     Dosage: 0.25 MICROGRAM, ONCE A DAY
     Route: 065
  9. ALFACALCIDOL [Concomitant]
     Active Substance: ALFACALCIDOL
     Dosage: 0.25 MICROGRAM, ONCE A DAY
     Route: 065
  10. THIAMINE [Concomitant]
     Active Substance: THIAMINE
     Indication: Product used for unknown indication
     Dosage: 100 MILLIGRAM, ONCE A DAY
     Route: 065
  11. THIAMINE [Concomitant]
     Active Substance: THIAMINE
     Dosage: 100 MILLIGRAM, ONCE A DAY
     Route: 065
  12. MELATONIN [Concomitant]
     Active Substance: MELATONIN
     Indication: Product used for unknown indication
     Dosage: 3 MILLIGRAM, ONCE A DAY
     Route: 065
  13. MELATONIN [Concomitant]
     Active Substance: MELATONIN
     Dosage: 3 MILLIGRAM, ONCE A DAY
     Route: 065
  14. INSULIN NOS [Concomitant]
     Active Substance: INSULIN NOS
     Indication: Type 2 diabetes mellitus
     Dosage: 3000 INTERNATIONAL UNIT
     Route: 065
  15. BENEFIX [Concomitant]
     Active Substance: COAGULATION FACTOR IX RECOMBINANT HUMAN\ISOPROPYL ALCOHOL
     Indication: Product used for unknown indication
     Dosage: 6000 INTERNATIONAL UNIT, ONCE A DAY
     Route: 065

REACTIONS (12)
  - Cardiopulmonary failure [Fatal]
  - Anion gap increased [Recovered/Resolved]
  - Blood albumin decreased [Recovered/Resolved]
  - Blood bicarbonate decreased [Recovered/Resolved]
  - Blood chloride increased [Recovered/Resolved]
  - Blood sodium increased [Recovered/Resolved]
  - Confusional state [Recovered/Resolved]
  - Pyroglutamate increased [Recovered/Resolved]
  - PCO2 decreased [Recovered/Resolved]
  - Tachypnoea [Recovered/Resolved]
  - Metabolic acidosis [Recovered/Resolved]
  - Drug interaction [Recovered/Resolved]
